FAERS Safety Report 13631797 (Version 1)
Quarter: 2017Q2

REPORT INFORMATION
  Report Type: Spontaneous
  Country: US (occurrence: US)
  Receive Date: 20170531
  Receipt Date: 20170531
  Transmission Date: 20170830
  Serious: No
  Sender: FDA-Public Use
  Company Number: US-ASTELLAS-1415208

PATIENT
  Age: 76 Year
  Sex: Male

DRUGS (9)
  1. GABAPENTIN. [Concomitant]
     Active Substance: GABAPENTIN
  2. CRESTOR [Concomitant]
     Active Substance: ROSUVASTATIN CALCIUM
  3. TARCEVA [Suspect]
     Active Substance: ERLOTINIB HYDROCHLORIDE
     Indication: LUNG NEOPLASM MALIGNANT
     Route: 048
     Dates: start: 20140527
  4. AMLODIPINE BESYLATE. [Concomitant]
     Active Substance: AMLODIPINE BESYLATE
  5. HCTZ [Concomitant]
     Active Substance: HYDROCHLOROTHIAZIDE
  6. TAMSULOSIN HCL [Concomitant]
     Active Substance: TAMSULOSIN
  7. LOSARTAN POTASSIUM. [Concomitant]
     Active Substance: LOSARTAN POTASSIUM
  8. BICALUTAMIDE. [Concomitant]
     Active Substance: BICALUTAMIDE
  9. ACETAMINOPHEN. [Concomitant]
     Active Substance: ACETAMINOPHEN

REACTIONS (3)
  - Nausea [Unknown]
  - Fatigue [Unknown]
  - Rash [Unknown]

NARRATIVE: CASE EVENT DATE: 20140531
